FAERS Safety Report 8417299-7 (Version None)
Quarter: 2012Q2

REPORT INFORMATION
  Report Type: 
  Country: None (occurrence: None)
  Receive Date: 20120606
  Receipt Date: 20120528
  Transmission Date: 20120825
  Serious: Yes (Hospitalization)
  Sender: FDA-Public Use
  Company Number: IT-ELI_LILLY_AND_COMPANY-IT200901005473

PATIENT
  Sex: Female

DRUGS (2)
  1. THERAPEUTIC RADIOPHARMACEUTICALS [Concomitant]
     Indication: PALLIATIVE CARE
     Dosage: UNK
     Dates: start: 20080801
  2. GEMZAR [Suspect]
     Indication: LEIOMYOSARCOMA METASTATIC
     Dosage: 1000 MG, WEEKLY (1/W)
     Route: 042
     Dates: start: 20080715, end: 20081007

REACTIONS (2)
  - POSTERIOR REVERSIBLE ENCEPHALOPATHY SYNDROME [None]
  - HYPERTENSION [None]
